FAERS Safety Report 23830853 (Version 2)
Quarter: 2024Q2

REPORT INFORMATION
  Report Type: Spontaneous
  Country: US (occurrence: US)
  Receive Date: 20240508
  Receipt Date: 20240510
  Transmission Date: 20240716
  Serious: Yes (Other)
  Sender: FDA-Public Use
  Company Number: US-JNJFOC-20240503725

PATIENT
  Age: 9 Year
  Sex: Male
  Weight: 38.6 kg

DRUGS (14)
  1. IBUPROFEN [Suspect]
     Active Substance: IBUPROFEN
     Indication: Scrotal pain
     Dosage: CUMULATIVE IBUPROFEN DOSE OVER 3.5 DAYS WAS 3,740 MG (97 MG/KG)
     Route: 048
  2. VANCOMYCIN [Suspect]
     Active Substance: VANCOMYCIN
     Indication: Scrotal cellulitis
     Dosage: (15 MG/KG EVERY EIGHT HOURS)
     Route: 042
  3. VANCOMYCIN [Suspect]
     Active Substance: VANCOMYCIN
     Indication: Urinary tract infection
  4. PIPERACILLIN SODIUM\TAZOBACTAM SODIUM [Suspect]
     Active Substance: PIPERACILLIN SODIUM\TAZOBACTAM SODIUM
     Indication: Scrotal cellulitis
     Dosage: (100 MG/KG EVERY SIX HOURS)
     Route: 042
  5. PIPERACILLIN SODIUM\TAZOBACTAM SODIUM [Suspect]
     Active Substance: PIPERACILLIN SODIUM\TAZOBACTAM SODIUM
     Indication: Urinary tract infection
  6. CEFDINIR [Concomitant]
     Active Substance: CEFDINIR
     Indication: Urinary tract infection
     Dosage: 7 MG/KG EVERY 12 HOURS
     Route: 065
  7. CEFDINIR [Concomitant]
     Active Substance: CEFDINIR
     Indication: Scrotal cellulitis
  8. LINEZOLID [Concomitant]
     Active Substance: LINEZOLID
     Indication: Scrotal cellulitis
     Dosage: (10 MG/KG EVERY 12 HOURS)
     Route: 042
  9. LINEZOLID [Concomitant]
     Active Substance: LINEZOLID
     Indication: Urinary tract infection
  10. DEXTROSE\SODIUM CHLORIDE [Concomitant]
     Active Substance: DEXTROSE\SODIUM CHLORIDE
     Indication: Product used for unknown indication
     Route: 042
  11. POTASSIUM CHLORIDE [Concomitant]
     Active Substance: POTASSIUM CHLORIDE
     Indication: Product used for unknown indication
     Dosage: 40 MEQ
     Route: 048
  12. SODIUM CHLORIDE [Concomitant]
     Active Substance: SODIUM CHLORIDE
     Indication: Product used for unknown indication
     Dosage: 0.9 %
     Route: 065
  13. HYDROMORPHONE [Concomitant]
     Active Substance: HYDROMORPHONE
     Indication: Scrotal pain
     Route: 065
  14. AMOXICILLIN [Concomitant]
     Active Substance: AMOXICILLIN
     Indication: Scrotal infection
     Route: 048

REACTIONS (4)
  - Acute kidney injury [Unknown]
  - Generalised oedema [Unknown]
  - Hypokalaemia [Unknown]
  - Blood albumin decreased [Recovered/Resolved]
